FAERS Safety Report 5830647-7 (Version None)
Quarter: 2008Q3

REPORT INFORMATION
  Report Type: 
  Country: None (occurrence: None)
  Receive Date: 20080801
  Receipt Date: 20070910
  Transmission Date: 20090109
  Serious: No
  Sender: FDA-Public Use
  Company Number: US-BRISTOL-MYERS SQUIBB COMPANY-13902002

PATIENT
  Age: 78 Year
  Sex: Male
  Weight: 98 kg

DRUGS (4)
  1. COUMADIN [Suspect]
     Indication: PROPHYLAXIS
     Dosage: INITIAL DOSE WAS 5MG ONCE DAILY, THEN 2.5 MG ONCE DAILY AND NOW 3.5 MG ONCE DAILY.
     Route: 048
     Dates: start: 20070801
  2. LAMICTAL [Concomitant]
  3. RAZADYNE [Concomitant]
  4. ATENOLOL [Concomitant]

REACTIONS (2)
  - ASTHENIA [None]
  - PALLOR [None]
